FAERS Safety Report 4980811-4 (Version None)
Quarter: 2006Q2

REPORT INFORMATION
  Report Type: 
  Country: None (occurrence: None)
  Receive Date: 20060424
  Receipt Date: 20060117
  Transmission Date: 20061013
  Serious: Yes (Hospitalization)
  Sender: FDA-Public Use
  Company Number: US-MERCK-0601USA02247

PATIENT
  Age: 53 Year
  Sex: Male
  Weight: 151 kg

DRUGS (16)
  1. DIOVAN [Concomitant]
     Route: 065
     Dates: start: 19981006, end: 20010501
  2. DOXYCYCLINE [Concomitant]
     Route: 065
  3. EFFEXOR [Concomitant]
     Route: 065
  4. ALTOCOR [Concomitant]
     Indication: BLOOD CHOLESTEROL INCREASED
     Route: 065
     Dates: start: 20000711
  5. AMOXICILLIN [Concomitant]
     Route: 065
  6. VIOXX [Suspect]
     Indication: OSTEOARTHRITIS
     Route: 048
     Dates: start: 20000601, end: 20040930
  7. TYLENOL W/ CODEINE NO. 3 [Concomitant]
     Route: 065
  8. ACTOS [Concomitant]
     Indication: DIABETES MELLITUS
     Route: 065
  9. ACYCLOVIR [Concomitant]
     Route: 065
  10. CEFUROXIME [Concomitant]
     Route: 065
  11. LEVAQUIN [Concomitant]
     Indication: BACTERIAL INFECTION
     Route: 065
  12. LIPITOR [Concomitant]
     Route: 065
     Dates: start: 20000701
  13. PAXIL [Concomitant]
     Route: 065
  14. PHISOHEX [Concomitant]
     Route: 065
  15. UROXATRAL [Concomitant]
     Route: 065
  16. [THERAPY UNSPECIFIED] [Concomitant]
     Route: 065
     Dates: start: 19990722, end: 20010801

REACTIONS (8)
  - ARTERIAL DISORDER [None]
  - CARDIAC FAILURE CONGESTIVE [None]
  - CARDIOVASCULAR DISORDER [None]
  - CORONARY ARTERY DISEASE [None]
  - GASTRIC BYPASS [None]
  - MYOCARDIAL INFARCTION [None]
  - OSTEOARTHRITIS [None]
  - ULCER HAEMORRHAGE [None]
